FAERS Safety Report 14729653 (Version 1)
Quarter: 2018Q2

REPORT INFORMATION
  Report Type: Spontaneous
  Country: US (occurrence: US)
  Receive Date: 20180402
  Receipt Date: 20180402
  Transmission Date: 20180711
  Serious: Yes (Hospitalization)
  Sender: FDA-Public Use
  Company Number: None

PATIENT
  Age: 75 Year
  Sex: Female

DRUGS (5)
  1. SPIRONACTOLONE [Concomitant]
  2. ADCIRCA [Suspect]
     Active Substance: TADALAFIL
     Indication: PULMONARY ARTERIAL HYPERTENSION
     Route: 048
     Dates: start: 20180117
  3. PRAVASTATIN. [Concomitant]
     Active Substance: PRAVASTATIN
  4. FUROSEMIDE. [Concomitant]
     Active Substance: FUROSEMIDE
  5. AMLOD/BENAZOPSUMIT [Concomitant]

REACTIONS (2)
  - Blood creatine abnormal [None]
  - Renal disorder [None]

NARRATIVE: CASE EVENT DATE: 20180203
